FAERS Safety Report 25180611 (Version 1)
Quarter: 2025Q2

REPORT INFORMATION
  Report Type: Report from Study
  Country: CA (occurrence: CA)
  Receive Date: 20250409
  Receipt Date: 20250409
  Transmission Date: 20250716
  Serious: Yes (Death, Hospitalization, Other)
  Sender: JOHNSON AND JOHNSON
  Company Number: CA-JNJFOC-20240601237

PATIENT
  Age: 42 Year
  Sex: Female

DRUGS (2)
  1. TREMFYA [Suspect]
     Active Substance: GUSELKUMAB
     Indication: Psoriasis
     Route: 058
     Dates: start: 20201222
  2. TREMFYA [Suspect]
     Active Substance: GUSELKUMAB
     Indication: Psoriasis
     Route: 058

REACTIONS (13)
  - Post procedural complication [Fatal]
  - Long QT syndrome [Not Recovered/Not Resolved]
  - Infection [Not Recovered/Not Resolved]
  - Haemoglobin decreased [Unknown]
  - Blood magnesium decreased [Not Recovered/Not Resolved]
  - Illness [Not Recovered/Not Resolved]
  - Blood potassium decreased [Not Recovered/Not Resolved]
  - Haemorrhage [Unknown]
  - Splenomegaly [Unknown]
  - Hepatic steatosis [Unknown]
  - Liver disorder [Unknown]
  - Nausea [Unknown]
  - Vomiting [Unknown]

NARRATIVE: CASE EVENT DATE: 20240501
